FAERS Safety Report 4915025-7 (Version None)
Quarter: 2006Q1

REPORT INFORMATION
  Report Type: 
  Country: None (occurrence: None)
  Receive Date: 20060217
  Receipt Date: 20060126
  Transmission Date: 20060701
  Serious: Yes (Disabling, Other)
  Sender: FDA-Public Use
  Company Number: PHBS2006ZA01558

PATIENT
  Age: 61 Year
  Sex: Female
  Weight: 103 kg

DRUGS (8)
  1. DIOVAN HCT [Suspect]
     Indication: HYPERTENSION
     Dosage: VALS 160 / HCT 12.5 MG
     Route: 048
     Dates: start: 20051101
  2. LASIX [Concomitant]
  3. METFORMIN [Concomitant]
  4. DIAMICRON [Concomitant]
  5. PLENISH-K [Concomitant]
  6. WARFARIN [Concomitant]
  7. LANOXIN [Concomitant]
  8. CARVEDILOL [Concomitant]

REACTIONS (4)
  - ARTHRALGIA [None]
  - ARTHRITIS REACTIVE [None]
  - BACK PAIN [None]
  - MYALGIA [None]
